FAERS Safety Report 25662486 (Version 1)
Quarter: 2025Q3

REPORT INFORMATION
  Report Type: Spontaneous
  Country: EU (occurrence: EU)
  Receive Date: 20250810
  Receipt Date: 20250810
  Transmission Date: 20251020
  Serious: Yes (Death, Hospitalization, Other)
  Sender: BRISTOL-MYERS SQUIBB COMPANY
  Company Number: EU-BRISTOL-MYERS SQUIBB COMPANY-2025-110319

PATIENT
  Age: 34 Year
  Sex: Female

DRUGS (1)
  1. AZACITIDINE [Suspect]
     Active Substance: AZACITIDINE
     Indication: Acute myeloid leukaemia
     Route: 058

REACTIONS (1)
  - Neutropenic sepsis [Fatal]
